FAERS Safety Report 9434972 (Version 1)
Quarter: 2013Q3

REPORT INFORMATION
  Report Type: Spontaneous
  Country: US (occurrence: US)
  Receive Date: 20130801
  Receipt Date: 20130801
  Transmission Date: 20140515
  Serious: Yes (Hospitalization, Other)
  Sender: FDA-Public Use
  Company Number: US-TEVA-422525USA

PATIENT
  Age: 80 Year
  Sex: Male

DRUGS (1)
  1. METHYLPREDNISOLONE [Suspect]
     Route: 008
     Dates: start: 20120912

REACTIONS (2)
  - Meningitis exserohilum [Recovering/Resolving]
  - Transmission of an infectious agent via product [Recovering/Resolving]
